FAERS Safety Report 24358040 (Version 1)
Quarter: 2024Q3

REPORT INFORMATION
  Report Type: Spontaneous
  Country: JP (occurrence: JP)
  Receive Date: 20240924
  Receipt Date: 20240924
  Transmission Date: 20241017
  Serious: Yes (Hospitalization, Other)
  Sender: BRACCO
  Company Number: JP-BAYER-2024A132233

PATIENT
  Age: 60 Year
  Sex: Male

DRUGS (27)
  1. IOPAMIRON [Suspect]
     Active Substance: IOPAMIDOL
     Indication: Diagnostic procedure
     Dosage: 100 ML, SINGLE
     Route: 041
     Dates: start: 20240502, end: 20240502
  2. IOPAMIRON [Suspect]
     Active Substance: IOPAMIDOL
     Indication: Diagnostic procedure
     Dosage: 100 ML, SINGLE
     Route: 041
     Dates: start: 20240502, end: 20240502
  3. CEFACLOR [Suspect]
     Active Substance: CEFACLOR
     Indication: Infection prophylaxis
     Dosage: 250 MG, BID
     Route: 048
     Dates: start: 20240501, end: 20240507
  4. NADIFLOXACIN [Concomitant]
     Active Substance: NADIFLOXACIN
     Indication: Abscess
     Dosage: UNK
     Dates: start: 20240501
  5. AMLODIPINE BESYLATE [Concomitant]
     Active Substance: AMLODIPINE BESYLATE
     Dosage: 2.5 MG, QD
  6. BETAMETHASONE DIPROPIONATE [Concomitant]
     Active Substance: BETAMETHASONE DIPROPIONATE
  7. DAYVIGO [Concomitant]
     Active Substance: LEMBOREXANT
     Dosage: 2.5 MG
  8. FOLIC ACID [Concomitant]
     Active Substance: FOLIC ACID
     Dosage: 10 MG, QD
  9. FOSRENOL [Concomitant]
     Active Substance: LANTHANUM CARBONATE
     Dosage: 2250 MG, QD
  10. SILVER SULFADIAZINE [Concomitant]
     Active Substance: SILVER SULFADIAZINE
     Indication: Skin ulcer
     Dosage: UNK
     Dates: start: 20240509
  11. GENTAMICIN SULFATE [Concomitant]
     Active Substance: GENTAMICIN SULFATE
  12. HEPARIN C [Concomitant]
     Indication: Peripheral arterial occlusive disease
     Dosage: UNK
     Dates: start: 20240502
  13. INSULIN HUMAN [Concomitant]
     Active Substance: INSULIN HUMAN
     Dosage: UNK
     Dates: end: 20240527
  14. IOHEXOL [Concomitant]
     Active Substance: IOHEXOL
     Indication: Peripheral arterial occlusive disease
     Dosage: UNK
     Dates: start: 20240502
  15. LAGNOS NF [Concomitant]
     Dosage: 36 G, QD
  16. ISOSORBIDE DINITRATE [Concomitant]
     Active Substance: ISOSORBIDE DINITRATE
     Indication: Peripheral arterial occlusive disease
     Dosage: UNK
     Dates: start: 20240502
  17. LOSARTAN [Concomitant]
     Active Substance: LOSARTAN\LOSARTAN POTASSIUM
     Dosage: 100 MG, QD
  18. PLAVIX [Concomitant]
     Active Substance: CLOPIDOGREL BISULFATE
     Dosage: 75 MG, QD
  19. POLAPREZINC [Concomitant]
     Active Substance: POLAPREZINC
     Dosage: 2 DF, QD
  20. PETROLATUM [Concomitant]
     Active Substance: PETROLATUM
  21. RENAGEL [Concomitant]
     Active Substance: SEVELAMER HYDROCHLORIDE
     Dosage: 3000 MG, QD
  22. SODIUM CHLORIDE [Concomitant]
     Active Substance: SODIUM CHLORIDE
     Indication: Peripheral arterial occlusive disease
     Dosage: UNK
     Dates: start: 20240502
  23. LANSOPRAZOLE [Concomitant]
     Active Substance: LANSOPRAZOLE
     Dosage: 15 MG, QD
  24. ACETAMINOPHEN\TRAMADOL HYDROCHLORIDE [Concomitant]
     Active Substance: ACETAMINOPHEN\TRAMADOL HYDROCHLORIDE
     Dosage: 1 DF, QD
  25. VANCOMYCIN [Concomitant]
     Active Substance: VANCOMYCIN
     Indication: Staphylococcus test positive
     Dosage: UNK
     Dates: start: 20240507
  26. XYLOCAINE [Concomitant]
     Active Substance: LIDOCAINE HYDROCHLORIDE
     Indication: Peripheral arterial occlusive disease
     Dosage: UNK
     Dates: start: 20240502
  27. HERBALS [Concomitant]
     Active Substance: HERBALS
     Dosage: 2.5 G, QD

REACTIONS (17)
  - Erythema multiforme [Unknown]
  - Purpura [Recovered/Resolved]
  - Vasculitis [Unknown]
  - Rash [Recovering/Resolving]
  - Blister [Unknown]
  - Enanthema [Recovered/Resolved]
  - Erythema [Recovered/Resolved]
  - Peripheral swelling [Unknown]
  - Neutrophilic dermatosis [Unknown]
  - Punctate keratitis [Recovering/Resolving]
  - Feeling hot [Unknown]
  - Pain [Unknown]
  - Eye discharge [Recovering/Resolving]
  - Oral pain [Unknown]
  - Lymphocyte count decreased [Unknown]
  - Feeding disorder [Unknown]
  - Blood phosphorus increased [Unknown]

NARRATIVE: CASE EVENT DATE: 20240506
